FAERS Safety Report 8295022-7 (Version None)
Quarter: 2012Q2

REPORT INFORMATION
  Report Type: 
  Country: None (occurrence: None)
  Receive Date: 20120418
  Receipt Date: 20120413
  Transmission Date: 20120825
  Serious: Yes (Other)
  Sender: FDA-Public Use
  Company Number: IT-ELI_LILLY_AND_COMPANY-IT201204004136

PATIENT
  Age: 70 Year
  Sex: Male

DRUGS (1)
  1. CIALIS [Suspect]

REACTIONS (1)
  - PROSTATE CANCER METASTATIC [None]
